FAERS Safety Report 14335002 (Version 1)
Quarter: 2017Q4

REPORT INFORMATION
  Report Type: Spontaneous
  Country: FR (occurrence: FR)
  Receive Date: 20171229
  Receipt Date: 20171229
  Transmission Date: 20180321
  Serious: Yes (Hospitalization)
  Sender: FDA-Public Use
  Company Number: FR-009507513-1712FRA012857

PATIENT
  Age: 9 Year
  Sex: Female
  Weight: 29.3 kg

DRUGS (8)
  1. MERCAPTOPURINE. [Concomitant]
     Active Substance: MERCAPTOPURINE
     Indication: LEUKAEMIA
     Dosage: 984 MG, UNK
     Route: 048
     Dates: start: 20170827, end: 20171008
  2. METHOTREXATE. [Concomitant]
     Active Substance: METHOTREXATE
     Indication: LEUKAEMIA
     Dosage: 12 MG, UNK
     Route: 037
     Dates: start: 20170829, end: 20170927
  3. ONCASPAR [Concomitant]
     Active Substance: PEGASPARGASE
     Indication: LEUKAEMIA
     Dosage: 2750 IU, UNK
     Route: 042
     Dates: start: 20170911, end: 20171009
  4. IMIPENEM AND CILASTATIN [Suspect]
     Active Substance: CILASTATIN SODIUM\IMIPENEM
     Indication: INFECTION
     Dosage: INCONNUE
     Route: 042
     Dates: start: 201709, end: 201709
  5. VINCRISTINE SULFATE. [Concomitant]
     Active Substance: VINCRISTINE SULFATE
     Indication: LEUKAEMIA
     Dosage: 3.2 MG, UNK
     Route: 042
     Dates: start: 20170911, end: 20171018
  6. CYCLOPHOSPHAMIDE. [Suspect]
     Active Substance: CYCLOPHOSPHAMIDE
     Indication: LEUKAEMIA
     Dosage: 1100 MG, UNK
     Route: 042
     Dates: start: 20170827, end: 20170925
  7. HYDROCORTISONE. [Concomitant]
     Active Substance: HYDROCORTISONE
     Indication: LEUKAEMIA
     Dosage: 15 MG, UNK
     Route: 037
     Dates: start: 20170829, end: 20170927
  8. CYTARABINE. [Concomitant]
     Active Substance: CYTARABINE
     Indication: LEUKAEMIA
     Dosage: 664 MG, UNK
     Route: 042
     Dates: start: 20170829, end: 20171007

REACTIONS (3)
  - Colitis [Recovering/Resolving]
  - Cholecystitis [Recovering/Resolving]
  - Vomiting [Recovered/Resolved]

NARRATIVE: CASE EVENT DATE: 20170926
